FAERS Safety Report 5801283-3 (Version None)
Quarter: 2008Q3

REPORT INFORMATION
  Report Type: 
  Country: None (occurrence: None)
  Receive Date: 20080702
  Receipt Date: 20080626
  Transmission Date: 20090109
  Serious: Yes (Hospitalization)
  Sender: FDA-Public Use
  Company Number: 14608

PATIENT
  Age: 39 Year
  Sex: Male

DRUGS (3)
  1. MORPHINE SULFATE [Suspect]
     Indication: INTERVERTEBRAL DISC PROTRUSION
     Dosage: UNKNOWN DOSE ORALLY
     Route: 048
     Dates: start: 20080101, end: 20080206
  2. MORPHINE SULFATE [Suspect]
     Indication: PAIN
     Dosage: UNKNOWN DOSE ORALLY
     Route: 048
     Dates: start: 20080101, end: 20080206
  3. XANAX AND SOME OTC DRUGS [Concomitant]

REACTIONS (3)
  - ABNORMAL BEHAVIOUR [None]
  - PHARMACEUTICAL PRODUCT COMPLAINT [None]
  - RENAL FAILURE [None]
